FAERS Safety Report 7438559-2 (Version None)
Quarter: 2011Q2

REPORT INFORMATION
  Report Type: 
  Country: None (occurrence: None)
  Receive Date: 20110426
  Receipt Date: 20110415
  Transmission Date: 20111010
  Serious: Yes (Hospitalization)
  Sender: FDA-Public Use
  Company Number: CA-SANOFI-AVENTIS-2011SA005650

PATIENT
  Age: 74 Year
  Sex: Female
  Weight: 95 kg

DRUGS (2)
  1. SOLOSTAR [Suspect]
     Dates: start: 20101215, end: 20110122
  2. LANTUS [Suspect]
     Indication: TYPE 2 DIABETES MELLITUS
     Route: 058
     Dates: start: 20101215, end: 20110122

REACTIONS (3)
  - UROSEPSIS [None]
  - ATRIAL FIBRILLATION [None]
  - HYPERGLYCAEMIA [None]
